FAERS Safety Report 7773247-4 (Version None)
Quarter: 2011Q3

REPORT INFORMATION
  Report Type: 
  Country: None (occurrence: None)
  Receive Date: 20110922
  Receipt Date: 20110909
  Transmission Date: 20111222
  Serious: Yes (Congenital Anomaly, Other)
  Sender: FDA-Public Use
  Company Number: DE-MYLANLABS-2011S1018787

PATIENT
  Age: 0 Year
  Sex: Male
  Weight: 3.4 kg

DRUGS (3)
  1. AZATHIOPRINE [Suspect]
     Dosage: 150 [MG/D ]
     Route: 064
     Dates: start: 20100228
  2. FEMIBION [Concomitant]
     Dosage: 0-12 GW
     Route: 064
     Dates: start: 20100228
  3. PROTAPHANE [Concomitant]
     Dosage: 33 - 36.5 GW
     Route: 064
     Dates: end: 20101112

REACTIONS (4)
  - HAEMANGIOMA CONGENITAL [None]
  - MATERNAL DRUGS AFFECTING FOETUS [None]
  - ATRIAL SEPTAL DEFECT [None]
  - PREMATURE BABY [None]
